FAERS Safety Report 9384443 (Version 4)
Quarter: 2013Q3

REPORT INFORMATION
  Report Type: Spontaneous
  Country: JP (occurrence: None)
  Receive Date: 20130628
  Receipt Date: 20130823
  Transmission Date: 20140515
  Serious: Yes (Hospitalization, Other)
  Sender: FDA-Public Use
  Company Number: DSJ-2013-12791

PATIENT
  Age: 64 Year
  Sex: Female
  Weight: 52 kg

DRUGS (4)
  1. OLMETEC [Suspect]
     Indication: HYPERTENSION
     Dosage: 20 MG (20 MG, 1 IN I D), PER ORAL
     Route: 048
     Dates: start: 20110825
  2. BLINDED CS-747S [Suspect]
     Indication: ISCHAEMIC STROKE
     Dosage: BLINDED
     Route: 048
     Dates: start: 20120210, end: 20130419
  3. TENORMIN [Concomitant]
     Indication: HYPERTENSION
     Dosage: 50 MG (50 MG, 1 IN 1 D), PER ORAL
  4. CRESTOR [Concomitant]
     Indication: DYSLIPIDAEMIA
     Dosage: 10 MG (10 MG, 1 IN 1D), PER ORAL

REACTIONS (7)
  - Uterine leiomyoma [None]
  - Genital haemorrhage [None]
  - Haemoglobin decreased [None]
  - Metastases to ovary [None]
  - Gastric cancer [None]
  - Bone neoplasm [None]
  - Metastasis [None]
